FAERS Safety Report 6496404-6 (Version None)
Quarter: 2009Q4

REPORT INFORMATION
  Report Type: 
  Country: None (occurrence: None)
  Receive Date: 20091214
  Receipt Date: 20091210
  Transmission Date: 20100525
  Serious: Yes (Hospitalization, Disabling, Other)
  Sender: FDA-Public Use
  Company Number: CA-SANOFI-AVENTIS-200919123GDDC

PATIENT
  Age: 65 Year
  Sex: Female

DRUGS (4)
  1. DOCETAXEL [Suspect]
     Dosage: DOSE AS USED: UNK
     Route: 041
     Dates: start: 20090714, end: 20090714
  2. ATORVASTATIN CALCIUM [Concomitant]
     Route: 048
     Dates: start: 20020101
  3. CALCITE [Concomitant]
     Route: 048
     Dates: start: 20040101
  4. CENTRUM [Concomitant]
     Route: 048
     Dates: start: 20060101

REACTIONS (7)
  - GASTROINTESTINAL MOTILITY DISORDER [None]
  - HYPOAESTHESIA [None]
  - MICTURITION DISORDER [None]
  - NERVE COMPRESSION [None]
  - PAIN [None]
  - PARAPLEGIA [None]
  - THROMBOSIS [None]
